FAERS Safety Report 9805600 (Version 1)
Quarter: 2014Q1

REPORT INFORMATION
  Report Type: Spontaneous
  Country: US (occurrence: US)
  Receive Date: 20140109
  Receipt Date: 20140109
  Transmission Date: 20141002
  Serious: Yes (Death, Hospitalization, Other)
  Sender: FDA-Public Use
  Company Number: US-UCBSA-108201

PATIENT
  Age: 37 Year
  Sex: Male

DRUGS (6)
  1. OMEPRAZOLE [Suspect]
     Route: 048
  2. AMLODIPINE [Suspect]
     Route: 048
  3. METOPROLOL [Suspect]
     Route: 048
  4. ETHANOL [Suspect]
     Route: 048
  5. LISINOPRIL [Suspect]
     Route: 048
  6. SIMVASTATIN [Suspect]
     Route: 048

REACTIONS (2)
  - Cardio-respiratory arrest [Fatal]
  - Completed suicide [Fatal]
